FAERS Safety Report 4395367-7 (Version None)
Quarter: 2004Q3

REPORT INFORMATION
  Report Type: 
  Country: None (occurrence: None)
  Receive Date: 20040712
  Receipt Date: 20040712
  Transmission Date: 20050211
  Serious: Yes (Other)
  Sender: FDA-Public Use
  Company Number: None

PATIENT
  Sex: Male
  Weight: 79.3795 kg

DRUGS (1)
  1. GLYBURIDE/MICRONIZED  MANF MOVA [Suspect]
     Indication: DIABETES MELLITUS
     Dosage: 3 MG 2 PO BID
     Route: 048

REACTIONS (1)
  - DIARRHOEA [None]
